FAERS Safety Report 11977086 (Version 3)
Quarter: 2016Q1

REPORT INFORMATION
  Report Type: Spontaneous
  Country: JP (occurrence: JP)
  Receive Date: 20160129
  Receipt Date: 20160225
  Transmission Date: 20160526
  Serious: Yes (Other)
  Sender: FDA-Public Use
  Company Number: JP-GLAXOSMITHKLINE-JP2016JPN009862

PATIENT
  Age: 52 Year
  Sex: Male

DRUGS (1)
  1. RELVAR ELLIPTA [Suspect]
     Active Substance: FLUTICASONE FUROATE\VILANTEROL TRIFENATATE
     Dosage: 100 ?G, QD
     Route: 055
     Dates: end: 20160125

REACTIONS (4)
  - Discomfort [Unknown]
  - Foreign body aspiration [Unknown]
  - Product quality issue [Unknown]
  - Medication error [Unknown]

NARRATIVE: CASE EVENT DATE: 20160125
